FAERS Safety Report 7608866-9 (Version None)
Quarter: 2011Q3

REPORT INFORMATION
  Report Type: 
  Country: None (occurrence: None)
  Receive Date: 20110714
  Receipt Date: 20110708
  Transmission Date: 20111222
  Serious: No
  Sender: FDA-Public Use
  Company Number: US-PFIZER INC-2011011190

PATIENT
  Age: 57 Year
  Sex: Female

DRUGS (3)
  1. PRISTIQ [Suspect]
     Indication: DEPRESSION
     Dosage: 50 MG, UNK
     Route: 048
     Dates: start: 20080101
  2. PREMPRO [Suspect]
     Dosage: UNK
     Route: 048
  3. PRISTIQ [Suspect]
     Indication: HORMONE LEVEL ABNORMAL

REACTIONS (7)
  - ALOPECIA [None]
  - BALANCE DISORDER [None]
  - NAUSEA [None]
  - DRUG INEFFECTIVE [None]
  - BLOOD CHOLESTEROL INCREASED [None]
  - ANXIETY [None]
  - DIZZINESS [None]
